FAERS Safety Report 8241748-0 (Version None)
Quarter: 2012Q1

REPORT INFORMATION
  Report Type: 
  Country: None (occurrence: None)
  Receive Date: 20120328
  Receipt Date: 20120315
  Transmission Date: 20120608
  Serious: Yes (Other)
  Sender: FDA-Public Use
  Company Number: CA-ROCHE-1052227

PATIENT

DRUGS (4)
  1. ALTEPLASE [Suspect]
     Indication: ISCHAEMIC STROKE
     Route: 042
  2. FENTANYL CITRATE [Suspect]
     Indication: SEDATION
  3. HEPARIN SODIUM [Suspect]
     Indication: ANTICOAGULANT THERAPY
     Route: 042
  4. MIDAZOLAM HYDROCHLORIDE [Suspect]
     Indication: SEDATION

REACTIONS (2)
  - ARRHYTHMIA [None]
  - HYPOTENSION [None]
